FAERS Safety Report 9764325 (Version 1)
Quarter: 2013Q4

REPORT INFORMATION
  Report Type: Spontaneous
  Country: US (occurrence: US)
  Receive Date: 20131217
  Receipt Date: 20131217
  Transmission Date: 20140711
  Serious: Yes (Other)
  Sender: FDA-Public Use
  Company Number: US-ROCHE-1320981

PATIENT
  Sex: Male

DRUGS (9)
  1. XOLAIR [Suspect]
     Indication: ASTHMA
     Route: 058
  2. SINGULAIR [Concomitant]
  3. DULERA [Concomitant]
  4. VENTOLIN [Concomitant]
  5. XOPENEX HFA [Concomitant]
  6. ZANTAC [Concomitant]
  7. FLOMAX (UNITED STATES) [Concomitant]
  8. XYZAL [Concomitant]
  9. ALBUTEROL [Concomitant]

REACTIONS (2)
  - Pneumonia [Unknown]
  - Asthma [Unknown]
